FAERS Safety Report 4840810-X (Version None)
Quarter: 2005Q4

REPORT INFORMATION
  Report Type: 
  Country: None (occurrence: None)
  Receive Date: 20051130
  Receipt Date: 20050208
  Transmission Date: 20060501
  Serious: No
  Sender: FDA-Public Use
  Company Number: US-BRISTOL-MYERS SQUIBB COMPANY-12855862

PATIENT
  Age: 56 Year
  Sex: Male

DRUGS (3)
  1. AVALIDE [Suspect]
     Indication: HYPERTENSION
  2. TOPROL-XL [Concomitant]
     Indication: HYPERTENSION
  3. GLUCOTROL XL [Concomitant]

REACTIONS (1)
  - ANGIONEUROTIC OEDEMA [None]
